FAERS Safety Report 13096007 (Version 2)
Quarter: 2017Q1

REPORT INFORMATION
  Report Type: Spontaneous
  Country: GB (occurrence: GB)
  Receive Date: 20170109
  Receipt Date: 20170309
  Transmission Date: 20170428
  Serious: Yes (Hospitalization, Other)
  Sender: FDA-Public Use
  Company Number: GB-SUN PHARMACEUTICAL INDUSTRIES LTD-2016R1-130932

PATIENT
  Age: 76 Year
  Sex: Female

DRUGS (9)
  1. PARACETAMOL [Suspect]
     Active Substance: ACETAMINOPHEN
     Indication: INTERVERTEBRAL DISCITIS
  2. RIFAMPICIN [Concomitant]
     Active Substance: RIFAMPIN
     Indication: PSOAS ABSCESS
  3. RIFAMPICIN [Concomitant]
     Active Substance: RIFAMPIN
     Indication: EXTRADURAL ABSCESS
     Dosage: UNK
     Route: 048
  4. FLUCLOXACILLIN [Suspect]
     Active Substance: FLUCLOXACILLIN
     Indication: INTERVERTEBRAL DISCITIS
  5. RIFAMPICIN [Concomitant]
     Active Substance: RIFAMPIN
     Indication: INTERVERTEBRAL DISCITIS
  6. PARACETAMOL [Suspect]
     Active Substance: ACETAMINOPHEN
     Indication: PSOAS ABSCESS
  7. FLUCLOXACILLIN [Suspect]
     Active Substance: FLUCLOXACILLIN
     Indication: EXTRADURAL ABSCESS
  8. PARACETAMOL [Suspect]
     Active Substance: ACETAMINOPHEN
     Indication: EXTRADURAL ABSCESS
     Dosage: 1 G, QID
     Route: 048
  9. FLUCLOXACILLIN [Suspect]
     Active Substance: FLUCLOXACILLIN
     Indication: PSOAS ABSCESS
     Dosage: UNK
     Route: 042

REACTIONS (1)
  - Metabolic acidosis [Recovered/Resolved]
